FAERS Safety Report 5847202-5 (Version None)
Quarter: 2008Q3

REPORT INFORMATION
  Report Type: 
  Country: None (occurrence: None)
  Receive Date: 20080815
  Receipt Date: 20080811
  Transmission Date: 20090109
  Serious: Yes (Other)
  Sender: FDA-Public Use
  Company Number: PHEH2008US07019

PATIENT
  Sex: Male

DRUGS (4)
  1. FORADIL [Suspect]
  2. ALBUTEROL [Concomitant]
  3. DIAZEPAM [Concomitant]
  4. SENNA-S (DOCUSATE SODIUM/SENNA ALEXANDRINA) [Concomitant]

REACTIONS (6)
  - BIOPSY [None]
  - DEVICE MALFUNCTION [None]
  - DYSGEUSIA [None]
  - HEPATITIS C [None]
  - ORAL CANDIDIASIS [None]
  - ORAL DISORDER [None]
